FAERS Safety Report 15240755 (Version 2)
Quarter: 2018Q3

REPORT INFORMATION
  Report Type: Spontaneous
  Country: IL (occurrence: IL)
  Receive Date: 20180804
  Receipt Date: 20180809
  Transmission Date: 20181010
  Serious: Yes (Life-Threatening, Hospitalization, Other)
  Sender: FDA-Public Use
  Company Number: IL-AMGEN-ISRSP2018107551

PATIENT
  Age: 75 Year
  Sex: Male

DRUGS (9)
  1. PROLIA [Suspect]
     Active Substance: DENOSUMAB
     Indication: OSTEOPOROSIS
     Dosage: UNK
     Route: 065
  2. CREON [Concomitant]
     Active Substance: PANCRELIPASE AMYLASE\PANCRELIPASE LIPASE\PANCRELIPASE PROTEASE
     Dosage: 5 DF, QD
  3. SOMATULINE [Concomitant]
     Active Substance: LANREOTIDE ACETATE
     Dosage: 120 UNK, QMO
     Dates: start: 20160615
  4. FUSID [Concomitant]
     Active Substance: FUROSEMIDE
     Dosage: UNK
  5. AVODART [Concomitant]
     Active Substance: DUTASTERIDE
     Dosage: UNK
  6. AFINITOR [Suspect]
     Active Substance: EVEROLIMUS
     Indication: PRODUCT USED FOR UNKNOWN INDICATION
     Dosage: UNK
     Route: 065
     Dates: end: 20180711
  7. AMLO [Concomitant]
     Dosage: 2.5 MG, BID
  8. CARDILOC [Concomitant]
     Active Substance: BISOPROLOL FUMARATE
     Dosage: 1.25 UNK, BID
  9. AMLO [Concomitant]
     Dosage: 5 MG, BID

REACTIONS (14)
  - Intestinal perforation [Unknown]
  - Postoperative wound infection [Unknown]
  - Obesity [Unknown]
  - Flushing [Unknown]
  - Cardiac disorder [Unknown]
  - Plasma cell myeloma [Unknown]
  - Type 2 diabetes mellitus [Unknown]
  - Pancreatic neuroendocrine tumour [Unknown]
  - Intestinal obstruction [Unknown]
  - Urinary retention [Unknown]
  - Renal failure [Unknown]
  - Retroperitoneal lymphadenopathy [Unknown]
  - Gout [Unknown]
  - Headache [Unknown]

NARRATIVE: CASE EVENT DATE: 2016
